FAERS Safety Report 16286656 (Version 1)
Quarter: 2019Q2

REPORT INFORMATION
  Report Type: Spontaneous
  Country: US (occurrence: US)
  Receive Date: 20190507
  Receipt Date: 20190507
  Transmission Date: 20190711
  Serious: Yes (Hospitalization)
  Sender: FDA-Public Use
  Company Number: None

PATIENT
  Age: 78 Year
  Sex: Female

DRUGS (2)
  1. SULFASALAZINE 500MG TABLETS [Concomitant]
     Dates: start: 20180522
  2. ORENCIA [Suspect]
     Active Substance: ABATACEPT
     Indication: RHEUMATOID ARTHRITIS
     Dosage: ?          OTHER FREQUENCY:ONCE A WEEK;?
     Route: 058

REACTIONS (3)
  - Therapy cessation [None]
  - Fall [None]
  - Joint dislocation [None]

NARRATIVE: CASE EVENT DATE: 20190506
